FAERS Safety Report 6441960-7 (Version None)
Quarter: 2009Q4

REPORT INFORMATION
  Report Type: 
  Country: None (occurrence: None)
  Receive Date: 20091116
  Receipt Date: 20091104
  Transmission Date: 20100525
  Serious: Yes (Other)
  Sender: FDA-Public Use
  Company Number: IT-TYCO HEALTHCARE/MALLINCKRODT-T200902046

PATIENT
  Age: 50 Year
  Sex: Female

DRUGS (3)
  1. MORPHINE [Suspect]
     Indication: ANALGESIC THERAPY
     Dosage: 0.8 MG, HR CONTINUOUS
     Route: 042
  2. MELPHALAN [Suspect]
     Indication: MULTIPLE MYELOMA
     Dosage: 200 MG/M2, UNK
  3. PEGFILGRASTIM [Suspect]
     Dosage: DAY +1
     Route: 042

REACTIONS (1)
  - METABOLIC ENCEPHALOPATHY [None]
